FAERS Safety Report 4808617-7 (Version None)
Quarter: 2005Q4

REPORT INFORMATION
  Report Type: 
  Country: None (occurrence: None)
  Receive Date: 20051021
  Receipt Date: 20040202
  Transmission Date: 20060501
  Serious: Yes (Hospitalization)
  Sender: FDA-Public Use
  Company Number: FR_040203533

PATIENT
  Age: 50 Year
  Sex: Male

DRUGS (2)
  1. ZYPREXA [Suspect]
     Indication: BIPOLAR I DISORDER
     Dosage: 20 MG/DAY
     Dates: start: 20040101, end: 20040101
  2. DEPAKOTE [Concomitant]

REACTIONS (1)
  - THROMBOCYTOPENIA [None]
